FAERS Safety Report 18119522 (Version 1)
Quarter: 2020Q3

REPORT INFORMATION
  Report Type: Spontaneous
  Country: AU (occurrence: AU)
  Receive Date: 20200806
  Receipt Date: 20200806
  Transmission Date: 20201103
  Serious: Yes (Hospitalization, Other)
  Sender: FDA-Public Use
  Company Number: AU-PFIZER INC-2020293205

PATIENT
  Age: 18 Year
  Sex: Female

DRUGS (1)
  1. XANAX [Suspect]
     Active Substance: ALPRAZOLAM
     Dosage: 100 MG

REACTIONS (5)
  - Suspected counterfeit product [Unknown]
  - Somnolence [Unknown]
  - Overdose [Unknown]
  - Loss of consciousness [Unknown]
  - Suicide attempt [Unknown]
